FAERS Safety Report 8581657-0 (Version None)
Quarter: 2012Q3

REPORT INFORMATION
  Report Type: 
  Country: None (occurrence: None)
  Receive Date: 20120801
  Receipt Date: 20120801
  Transmission Date: 20120928
  Serious: Yes (Hospitalization, Other)
  Sender: FDA-Public Use
  Company Number: None

PATIENT
  Sex: Female

DRUGS (1)
  1. GIANBI 3MG/0.02MG TEVA [Suspect]
     Indication: CONTRACEPTION
     Dosage: ONCE A DAY PO
     Route: 048
     Dates: start: 20120509, end: 20120718

REACTIONS (1)
  - PULMONARY EMBOLISM [None]
